FAERS Safety Report 5122456-1 (Version None)
Quarter: 2006Q4

REPORT INFORMATION
  Report Type: 
  Country: None (occurrence: None)
  Receive Date: 20061004
  Receipt Date: 20060925
  Transmission Date: 20070319
  Serious: Yes (Other)
  Sender: FDA-Public Use
  Company Number: 2006-08-0204

PATIENT
  Sex: Female

DRUGS (5)
  1. PROVENTIL [Suspect]
     Indication: DRUG USE FOR UNKNOWN INDICATION
     Dosage: DF; INH
     Route: 055
  2. ASA (CON.) [Concomitant]
  3. LEVOTHYROXINE (CON.) [Concomitant]
  4. LISINOPRIL (CON.) [Concomitant]
  5. SEVELAMER (CON.) [Concomitant]

REACTIONS (1)
  - PORPHYRIA NON-ACUTE [None]
